FAERS Safety Report 7911945-X (Version None)
Quarter: 2011Q4

REPORT INFORMATION
  Report Type: 
  Country: None (occurrence: None)
  Receive Date: 20111114
  Receipt Date: 20111110
  Transmission Date: 20120403
  Serious: Yes (Other)
  Sender: FDA-Public Use
  Company Number: BE-ROCHE-1007434

PATIENT
  Age: 28 Year
  Sex: Male
  Weight: 75 kg

DRUGS (3)
  1. KEPPRA [Concomitant]
     Dates: start: 20110825
  2. DEPAKENE [Concomitant]
     Dates: start: 20110823
  3. VEMURAFENIB [Suspect]
     Indication: METASTATIC MALIGNANT MELANOMA
     Dosage: LAST DOSE PRIOR TO SAE: 17 OCTOBER 2011
     Route: 048
     Dates: start: 20110803

REACTIONS (1)
  - ANAL ABSCESS [None]
